FAERS Safety Report 7202729-9 (Version None)
Quarter: 2010Q4

REPORT INFORMATION
  Report Type: 
  Country: None (occurrence: None)
  Receive Date: 20101216
  Receipt Date: 20101125
  Transmission Date: 20110411
  Serious: Yes (Death, Hospitalization)
  Sender: FDA-Public Use
  Company Number: 2010JP007347

PATIENT
  Age: 61 Year
  Sex: Male

DRUGS (2)
  1. TACROLIMUS [Suspect]
     Indication: IMMUNOSUPPRESSION
     Dosage: 3 MG, BID
  2. PREDNISOLONE [Suspect]
     Indication: IMMUNOSUPPRESSION
     Dosage: 10 MG, UID/QD

REACTIONS (8)
  - BLOOD PRESSURE SYSTOLIC DECREASED [None]
  - BRAIN DEATH [None]
  - CRYPTOCOCCOSIS [None]
  - DEHYDRATION [None]
  - ENCEPHALITIS [None]
  - FALL [None]
  - LYMPHOPENIA [None]
  - UNRESPONSIVE TO STIMULI [None]
